FAERS Safety Report 5809713-8 (Version None)
Quarter: 2008Q3

REPORT INFORMATION
  Report Type: 
  Country: None (occurrence: None)
  Receive Date: 20080711
  Receipt Date: 20080711
  Transmission Date: 20090109
  Serious: Yes (Hospitalization)
  Sender: FDA-Public Use
  Company Number: None

PATIENT
  Sex: Male
  Weight: 91 kg

DRUGS (10)
  1. BORTEZOMIB 2.5 MG/KG DAYS 1,4,8,11,22,25,29,32 [Suspect]
     Indication: GLIOBLASTOMA
     Dosage: IV CYCLE 1 DAY 1
     Route: 042
     Dates: start: 20080623
  2. BEVACIZUMAB 15 MG/KG Q 3 WEEKS (DAYS 1 AND 22) [Suspect]
     Indication: GLIOBLASTOMA
     Dosage: IV CYCLE 1 DAY 1
     Route: 042
     Dates: start: 20080623
  3. ASPIRIN [Concomitant]
  4. BENAZEPRIL HYDROCHLORIDE [Concomitant]
  5. CITALOPRAM HYDROBROMIDE [Concomitant]
  6. FAMOTIDINE [Concomitant]
  7. METFORMIN [Concomitant]
  8. TEGRETOL-XR [Concomitant]
  9. DEXAMETHASONE [Concomitant]
  10. PRAVASTATIN [Concomitant]

REACTIONS (1)
  - DIVERTICULITIS [None]
